FAERS Safety Report 14733591 (Version 18)
Quarter: 2019Q3

REPORT INFORMATION
  Report Type: Report from Study
  Country: BR (occurrence: BR)
  Receive Date: 20180409
  Receipt Date: 20190816
  Transmission Date: 20191004
  Serious: Yes (Hospitalization)
  Sender: FDA-Public Use
  Company Number: BR-ROCHE-2099030

PATIENT
  Age: 59 Year
  Sex: Female
  Weight: 63.5 kg

DRUGS (82)
  1. DEXAMETHASONE. [Concomitant]
     Active Substance: DEXAMETHASONE
     Route: 048
     Dates: start: 20180412, end: 20180412
  2. DEXAMETHASONE. [Concomitant]
     Active Substance: DEXAMETHASONE
     Route: 048
     Dates: start: 20180424, end: 20180502
  3. RANITIDINE. [Concomitant]
     Active Substance: RANITIDINE
     Indication: ABDOMINAL PAIN UPPER
     Route: 065
     Dates: start: 20180320, end: 20180320
  4. DIPHENHYDRAMINE. [Concomitant]
     Active Substance: DIPHENHYDRAMINE
     Route: 065
     Dates: start: 20190403, end: 20190403
  5. ONDANSETRON [Concomitant]
     Active Substance: ONDANSETRON
     Route: 065
     Dates: start: 20190717, end: 20190717
  6. NYSTATIN. [Concomitant]
     Active Substance: NYSTATIN
     Indication: STOMATITIS
     Route: 065
     Dates: start: 20180323, end: 20180821
  7. LACTULONA [Concomitant]
     Indication: CONSTIPATION
     Route: 065
     Dates: start: 20180404, end: 20180408
  8. LACTULONA [Concomitant]
     Route: 065
     Dates: start: 20180430, end: 20180430
  9. CAPTOPRIL. [Concomitant]
     Active Substance: CAPTOPRIL
     Indication: HYPERTENSION
     Route: 065
     Dates: start: 20180408, end: 20180408
  10. CAPTOPRIL. [Concomitant]
     Active Substance: CAPTOPRIL
     Route: 065
     Dates: start: 20180616, end: 20180616
  11. NACL [Concomitant]
     Active Substance: SODIUM CHLORIDE
     Indication: HYPONATRAEMIA
     Route: 065
     Dates: start: 20180331, end: 20180401
  12. SODIUM CHLORIDE. [Concomitant]
     Active Substance: SODIUM CHLORIDE
     Indication: HYPONATRAEMIA
     Route: 065
     Dates: start: 20180331, end: 20180401
  13. BEVACIZUMAB. [Suspect]
     Active Substance: BEVACIZUMAB
     Indication: OVARIAN CANCER
     Dosage: DATE OF MOST RECENT DOSE OF BEVACIZUMAB PRIOR TO AE ONSET 20 MAR 2018?ON 12/APR/2018, SHE RECEIVED M
     Route: 042
     Dates: start: 20180320
  14. ALDACTONE [Concomitant]
     Active Substance: SPIRONOLACTONE
     Indication: ASCITES
     Route: 065
     Dates: start: 20180221, end: 20180330
  15. DEXAMETHASONE. [Concomitant]
     Active Substance: DEXAMETHASONE
     Indication: HYPERSENSITIVITY
     Route: 042
     Dates: start: 20180320, end: 20180320
  16. DIPHENHYDRAMINE. [Concomitant]
     Active Substance: DIPHENHYDRAMINE
     Route: 065
     Dates: start: 20190425, end: 20190425
  17. DIPHENHYDRAMINE. [Concomitant]
     Active Substance: DIPHENHYDRAMINE
     Route: 065
     Dates: start: 20190807, end: 20190807
  18. ONDANSETRON [Concomitant]
     Active Substance: ONDANSETRON
     Route: 065
     Dates: start: 20190403, end: 20190403
  19. ONDANSETRON [Concomitant]
     Active Substance: ONDANSETRON
     Route: 065
     Dates: start: 20190807, end: 20190807
  20. LACTULONA [Concomitant]
     Route: 065
     Dates: start: 20180502, end: 20180502
  21. PROMETHAZINE [Concomitant]
     Active Substance: PROMETHAZINE HYDROCHLORIDE
     Indication: HYPERSENSITIVITY
     Route: 065
     Dates: start: 20180319, end: 20180331
  22. LORATADINE. [Concomitant]
     Active Substance: LORATADINE
     Indication: PAPULE
     Route: 065
     Dates: start: 20180430, end: 20180502
  23. SERTRALINE [Concomitant]
     Active Substance: SERTRALINE HYDROCHLORIDE
     Indication: ANXIETY
     Route: 065
     Dates: start: 20190429
  24. LEVOTIROXIN [Concomitant]
     Active Substance: LEVOTHYROXINE SODIUM
     Indication: HYPOTHYROIDISM
     Route: 065
     Dates: start: 2016
  25. DIPYRONE [Concomitant]
     Active Substance: DIPYRONE
     Indication: ABDOMINAL PAIN
     Route: 065
     Dates: start: 20180221, end: 20180403
  26. DEXAMETHASONE. [Concomitant]
     Active Substance: DEXAMETHASONE
     Route: 042
     Dates: start: 20180428, end: 20180428
  27. ONDANSETRON [Concomitant]
     Active Substance: ONDANSETRON
     Route: 065
     Dates: start: 20180321, end: 20180321
  28. ONDANSETRON [Concomitant]
     Active Substance: ONDANSETRON
     Route: 065
     Dates: start: 20190314, end: 20190314
  29. NACL [Concomitant]
     Active Substance: SODIUM CHLORIDE
     Indication: HYPONATRAEMIA
     Route: 065
     Dates: start: 20180331, end: 20180401
  30. CAPTOPRIL. [Concomitant]
     Active Substance: CAPTOPRIL
     Route: 065
     Dates: start: 20180427, end: 20180427
  31. LOPERAMIDE [Concomitant]
     Active Substance: LOPERAMIDE
     Indication: DIARRHOEA
     Route: 065
     Dates: start: 20180321, end: 20180321
  32. OMEPRAZOLE. [Concomitant]
     Active Substance: OMEPRAZOLE
     Indication: ABDOMINAL PAIN UPPER
     Route: 065
     Dates: start: 20180321, end: 20180904
  33. AMLODIPINE [Concomitant]
     Active Substance: AMLODIPINE BESYLATE
     Indication: HYPERTENSION
     Route: 065
     Dates: start: 20180426, end: 20180426
  34. AMLODIPINE [Concomitant]
     Active Substance: AMLODIPINE BESYLATE
     Route: 065
     Dates: start: 20180501, end: 20180501
  35. LACTON [Concomitant]
     Indication: CONSTIPATION
     Route: 065
     Dates: start: 1968, end: 20180905
  36. RANITIDINE. [Concomitant]
     Active Substance: RANITIDINE
     Route: 065
     Dates: start: 20190403, end: 20190403
  37. DIPHENHYDRAMINE. [Concomitant]
     Active Substance: DIPHENHYDRAMINE
     Route: 065
     Dates: start: 20190314, end: 20190314
  38. ONDANSETRON [Concomitant]
     Active Substance: ONDANSETRON
     Indication: NAUSEA
     Route: 065
     Dates: start: 20180320, end: 20180320
  39. TRAMADOL. [Concomitant]
     Active Substance: TRAMADOL
     Indication: ABDOMINAL PAIN
     Route: 065
     Dates: start: 20180402, end: 20180403
  40. CAPTOPRIL. [Concomitant]
     Active Substance: CAPTOPRIL
     Indication: HYPERTENSION
     Route: 065
     Dates: start: 20180412, end: 20180412
  41. LORAZEPAN [Concomitant]
     Active Substance: LORAZEPAM
     Indication: INSOMNIA
     Route: 065
     Dates: start: 20180410, end: 20180716
  42. TRIAMCINOLONE [Concomitant]
     Active Substance: TRIAMCINOLONE
     Indication: STOMATITIS
     Dosage: DOSE 1 OTHER
     Route: 061
     Dates: start: 20180331, end: 20180408
  43. ALOE VERA [Concomitant]
     Active Substance: ALOE VERA LEAF
     Indication: STOMATITIS
     Route: 065
     Dates: start: 20180331, end: 20180408
  44. SODIUM CHLORIDE. [Concomitant]
     Active Substance: SODIUM CHLORIDE
     Indication: PROPHYLAXIS
     Dosage: SODIUM CHLORIDE 0.9% (NEBULIZATION)
     Route: 065
     Dates: start: 20180403, end: 20180406
  45. BUPRENORPHINE. [Concomitant]
     Active Substance: BUPRENORPHINE
     Indication: ABDOMINAL PAIN
     Route: 065
     Dates: start: 20181117
  46. FLUOXETIN [Concomitant]
     Active Substance: FLUOXETINE HYDROCHLORIDE
     Indication: ANXIETY
     Route: 065
     Dates: start: 2014
  47. DIPYRONE [Concomitant]
     Active Substance: DIPYRONE
     Route: 065
     Dates: start: 20180328
  48. DEXAMETHASONE. [Concomitant]
     Active Substance: DEXAMETHASONE
     Route: 048
     Dates: start: 20180410, end: 20180411
  49. RANITIDINE. [Concomitant]
     Active Substance: RANITIDINE
     Route: 065
     Dates: start: 20190425, end: 20190425
  50. DIPHENHYDRAMINE. [Concomitant]
     Active Substance: DIPHENHYDRAMINE
     Route: 065
     Dates: start: 20180412, end: 20180412
  51. ONDANSETRON [Concomitant]
     Active Substance: ONDANSETRON
     Route: 065
     Dates: start: 20181130
  52. ONDANSETRON [Concomitant]
     Active Substance: ONDANSETRON
     Route: 065
     Dates: start: 20190425, end: 20190425
  53. CAPTOPRIL. [Concomitant]
     Active Substance: CAPTOPRIL
     Route: 065
     Dates: start: 20180501, end: 20180501
  54. TYLEX [CODEINE PHOSPHATE;PARACETAMOL] [Concomitant]
     Indication: ABDOMINAL PAIN
     Route: 065
     Dates: start: 20180221, end: 20180427
  55. RANITIDINE. [Concomitant]
     Active Substance: RANITIDINE
     Route: 065
     Dates: start: 20180412, end: 20180412
  56. FERROUS SULPHATE [FERROUS SULFATE] [Concomitant]
     Active Substance: FERROUS SULFATE
     Indication: INSOMNIA
     Route: 065
     Dates: start: 20180410, end: 20180426
  57. OMEGA 3 [DOCOSAHEXAENOIC ACID;EICOSAPENTAENOIC ACID] [Concomitant]
     Route: 065
     Dates: start: 20181220
  58. ESOMEPRAZOLE. [Concomitant]
     Active Substance: ESOMEPRAZOLE MAGNESIUM
     Indication: GASTRITIS
     Route: 065
     Dates: start: 20190208
  59. PREGABALIN. [Concomitant]
     Active Substance: PREGABALIN
     Indication: POLYARTHRITIS
     Route: 065
     Dates: start: 20190328, end: 20190330
  60. BLINDED ATEZOLIZUMAB [Suspect]
     Active Substance: ATEZOLIZUMAB
     Indication: OVARIAN CANCER
     Dosage: DATE OF MOST RECENT DOSE OF ATEZOLIZUMAB/PLACEBO PRIOR TO AE ONSET 20 MAR 2018?ON 12/APR/2018, SHE R
     Route: 042
     Dates: start: 20180320
  61. PACLITAXEL. [Suspect]
     Active Substance: PACLITAXEL
     Indication: OVARIAN CANCER
     Dosage: DATE OF MOST RECENT DOSE OF PACLITAXEL PRIOR TO AE ONSET 20 MAR 2018?ON 12/APR/2018, SHE RECEIVED MO
     Route: 042
     Dates: start: 20180320
  62. RANITIDINE. [Concomitant]
     Active Substance: RANITIDINE
     Route: 065
     Dates: start: 20190314, end: 20190314
  63. RANITIDINE. [Concomitant]
     Active Substance: RANITIDINE
     Route: 065
     Dates: start: 20190717, end: 20190717
  64. XYLOCAINE [Concomitant]
     Active Substance: LIDOCAINE HYDROCHLORIDE
     Indication: STOMATITIS
     Route: 065
     Dates: start: 20180402, end: 20180408
  65. LUFTAL [DIMETICONE] [Concomitant]
     Indication: CONSTIPATION
     Route: 065
     Dates: start: 20180404, end: 20180408
  66. CAPTOPRIL. [Concomitant]
     Active Substance: CAPTOPRIL
     Route: 065
     Dates: start: 20180614, end: 20180614
  67. PROMETHAZINE [Concomitant]
     Active Substance: PROMETHAZINE HYDROCHLORIDE
     Indication: URTICARIA
     Route: 065
     Dates: start: 20180428, end: 20180428
  68. FERROUS SULPHATE [FERROUS SULFATE] [Concomitant]
     Active Substance: FERROUS SULFATE
     Route: 065
     Dates: start: 20180427
  69. FOLIC ACID. [Concomitant]
     Active Substance: FOLIC ACID
     Route: 065
     Dates: start: 20180427
  70. PARACETAMOL [Concomitant]
     Active Substance: ACETAMINOPHEN
     Indication: PROPHYLAXIS
     Route: 065
     Dates: start: 20180423, end: 20180424
  71. RED BLOOD CELLS, CONCENTRATED [Concomitant]
     Active Substance: HUMAN RED BLOOD CELL
     Indication: ANAEMIA
     Route: 065
     Dates: start: 20180426, end: 20180426
  72. BISACODILO [Concomitant]
     Indication: CONSTIPATION
     Route: 065
     Dates: start: 20180426, end: 20180426
  73. DIACERHEIN [Concomitant]
     Indication: POLYARTHRITIS
     Route: 065
     Dates: start: 20190624, end: 20190728
  74. CARBOPLATIN. [Suspect]
     Active Substance: CARBOPLATIN
     Indication: OVARIAN CANCER
     Dosage: DATE OF MOST RECENT DOSE OF CARBOPLATIN PRIOR TO AE ONSET 20 MAR 2018 ?ACHIEVE A TARGET AREA UNDER T
     Route: 042
     Dates: start: 20180320
  75. ZOLPIDEM [Concomitant]
     Active Substance: ZOLPIDEM TARTRATE
     Indication: INSOMNIA
     Route: 065
     Dates: start: 20180221, end: 20180409
  76. RANITIDINE. [Concomitant]
     Active Substance: RANITIDINE
     Route: 065
     Dates: start: 20190807, end: 20190807
  77. DIPHENHYDRAMINE. [Concomitant]
     Active Substance: DIPHENHYDRAMINE
     Indication: HYPERSENSITIVITY
     Route: 065
     Dates: start: 20180320, end: 20180320
  78. DIPHENHYDRAMINE. [Concomitant]
     Active Substance: DIPHENHYDRAMINE
     Route: 065
     Dates: start: 20190717, end: 20190717
  79. ONDANSETRON [Concomitant]
     Active Substance: ONDANSETRON
     Indication: VOMITING
     Route: 065
     Dates: start: 20180412, end: 20180412
  80. FOLIC ACID. [Concomitant]
     Active Substance: FOLIC ACID
     Indication: ANAEMIA
     Route: 065
     Dates: start: 20180410, end: 20180426
  81. VITAMIN C [Concomitant]
     Active Substance: ASCORBIC ACID
     Route: 065
     Dates: start: 20181225
  82. IBUPROFEN. [Concomitant]
     Active Substance: IBUPROFEN
     Indication: ARTHRALGIA
     Route: 065
     Dates: start: 20190205, end: 20190325

REACTIONS (5)
  - Urticaria [Recovered/Resolved]
  - Febrile neutropenia [Recovered/Resolved]
  - Hypertension [Recovered/Resolved]
  - Thrombocytopenia [Recovered/Resolved]
  - Hypertension [Recovered/Resolved]

NARRATIVE: CASE EVENT DATE: 20180329
